FAERS Safety Report 9682886 (Version 1)
Quarter: 2013Q4

REPORT INFORMATION
  Report Type: Spontaneous
  Country: US (occurrence: US)
  Receive Date: 20131112
  Receipt Date: 20131112
  Transmission Date: 20140711
  Serious: Yes (Other)
  Sender: FDA-Public Use
  Company Number: US-AMGEN-USASP2013078756

PATIENT
  Age: 79 Year
  Sex: Female

DRUGS (3)
  1. XGEVA [Suspect]
     Indication: PRODUCT USED FOR UNKNOWN INDICATION
     Route: 065
  2. CARBOPLATIN ABIC [Concomitant]
     Route: 065
  3. ETOPOSIDE [Concomitant]
     Route: 065

REACTIONS (1)
  - Blood calcium abnormal [Unknown]
